FAERS Safety Report 20064917 (Version 2)
Quarter: 2021Q4

REPORT INFORMATION
  Report Type: Other
  Country: US (occurrence: None)
  Receive Date: 20211112
  Receipt Date: 20211213
  Transmission Date: 20220303
  Serious: Yes (Hospitalization)
  Sender: FDA-Public Use
  Company Number: US-ROCHE-2954835

PATIENT
  Sex: Female

DRUGS (4)
  1. ESBRIET [Suspect]
     Active Substance: PIRFENIDONE
     Indication: Idiopathic pulmonary fibrosis
     Route: 048
  2. ESBRIET [Suspect]
     Active Substance: PIRFENIDONE
     Indication: Diabetes mellitus
  3. ESBRIET [Suspect]
     Active Substance: PIRFENIDONE
     Indication: Migraine
  4. ESBRIET [Suspect]
     Active Substance: PIRFENIDONE
     Indication: Asthma

REACTIONS (2)
  - Dyspnoea [Unknown]
  - Lung disorder [Unknown]
